FAERS Safety Report 6895714-8 (Version None)
Quarter: 2010Q3

REPORT INFORMATION
  Report Type: 
  Country: None (occurrence: None)
  Receive Date: 20100730
  Receipt Date: 20100730
  Transmission Date: 20110219
  Serious: Yes (Hospitalization)
  Sender: FDA-Public Use
  Company Number: None

PATIENT
  Age: 54 Year
  Sex: Male
  Weight: 61.2356 kg

DRUGS (1)
  1. SEROQUEL [Suspect]
     Dosage: 100MG QHS PO
     Route: 048
     Dates: start: 20100721, end: 20100721

REACTIONS (4)
  - DYSARTHRIA [None]
  - LETHARGY [None]
  - MENTAL STATUS CHANGES [None]
  - RHABDOMYOLYSIS [None]
